FAERS Safety Report 7690595-7 (Version None)
Quarter: 2011Q3

REPORT INFORMATION
  Report Type: 
  Country: None (occurrence: None)
  Receive Date: 20110818
  Receipt Date: 20110810
  Transmission Date: 20111222
  Serious: Yes (Hospitalization, Other)
  Sender: FDA-Public Use
  Company Number: US-BAYER-201038416NA

PATIENT
  Age: 23 Year
  Sex: Female
  Weight: 90.703 kg

DRUGS (15)
  1. IBUPROFEN [Concomitant]
     Dosage: UNK
     Dates: start: 20031101
  2. ALBUTEROL SULFATE AUTOHALER [Concomitant]
     Indication: ASTHMA
  3. YASMIN [Suspect]
     Indication: CONTRACEPTION
     Dosage: UNK
     Dates: start: 20030801, end: 20031123
  4. LORTAB [Concomitant]
  5. LOVENOX [Concomitant]
  6. CYMBALTA [Concomitant]
     Indication: SLEEP DISORDER
  7. XOPENEX [Concomitant]
     Indication: ASTHMA
  8. CEFDINIR [Concomitant]
     Indication: BRONCHITIS
     Dosage: 300 MG, QD
     Route: 048
  9. ZITHROMAX [Concomitant]
  10. PROZAC [Concomitant]
     Indication: DEPRESSION
  11. FLOVENT [Concomitant]
     Indication: ASTHMA
  12. INDOCIN [Concomitant]
  13. COUMADIN [Concomitant]
  14. LEXAPRO [Concomitant]
     Dosage: 10 MG, QD
     Route: 048
  15. OMNICEF [Concomitant]
     Indication: BRONCHITIS

REACTIONS (4)
  - PAINFUL RESPIRATION [None]
  - PULMONARY THROMBOSIS [None]
  - DYSPNOEA [None]
  - PULMONARY EMBOLISM [None]
